FAERS Safety Report 11229170 (Version 1)
Quarter: 2015Q2

REPORT INFORMATION
  Report Type: Spontaneous
  Country: JP (occurrence: JP)
  Receive Date: 20150630
  Receipt Date: 20150630
  Transmission Date: 20150821
  Serious: Yes (Other)
  Sender: FDA-Public Use
  Company Number: JP-PFIZER INC-2015213367

PATIENT
  Age: 23 Year
  Sex: Female

DRUGS (1)
  1. CLINDAMYCIN PHOSPHATE. [Suspect]
     Active Substance: CLINDAMYCIN PHOSPHATE
     Indication: ACNE
     Dosage: UNK

REACTIONS (4)
  - Rash pustular [Unknown]
  - Hyperthermia [Unknown]
  - Erythema [Unknown]
  - Subcutaneous abscess [Unknown]
